FAERS Safety Report 8190743-9 (Version None)
Quarter: 2012Q1

REPORT INFORMATION
  Report Type: 
  Country: None (occurrence: None)
  Receive Date: 20120307
  Receipt Date: 20120306
  Transmission Date: 20120608
  Serious: Yes (Death)
  Sender: FDA-Public Use
  Company Number: IT-BAYER-2012-021779

PATIENT

DRUGS (6)
  1. NEXAVAR [Suspect]
     Indication: HEPATIC NEOPLASM MALIGNANT
     Dosage: DAILY DOSE 800 MG
     Route: 048
     Dates: start: 20120113, end: 20120208
  2. NEXAVAR [Suspect]
     Dosage: DAILY DOSE 400 MG
     Route: 048
     Dates: start: 20120209, end: 20120216
  3. KANRENOL [Concomitant]
     Dosage: DAILY DOSE 100 MG
     Route: 048
     Dates: start: 19930615, end: 20120221
  4. ESOPRAL [Concomitant]
     Dosage: DAILY DOSE 40 MG
     Route: 048
     Dates: start: 20111125, end: 20120217
  5. BISOPROLOL FUMARATE [Concomitant]
     Dosage: DAILY DOSE 2.5 MG
     Route: 048
     Dates: start: 19930615, end: 20120221
  6. ENALAPRIL MALEATE [Concomitant]
     Dosage: DAILY DOSE 20 MG
     Route: 048
     Dates: start: 19930615, end: 20120221

REACTIONS (9)
  - INFECTIOUS PERITONITIS [None]
  - INTESTINAL OBSTRUCTION [None]
  - HEPATORENAL SYNDROME [None]
  - LARGE INTESTINE PERFORATION [None]
  - RENAL FAILURE ACUTE [None]
  - DIVERTICULITIS [None]
  - ACUTE ABDOMEN [None]
  - COLONIC STENOSIS [None]
  - MUSCLE DISORDER [None]
